FAERS Safety Report 24869352 (Version 1)
Quarter: 2025Q1

REPORT INFORMATION
  Report Type: Spontaneous
  Country: ES (occurrence: ES)
  Receive Date: 20250121
  Receipt Date: 20250121
  Transmission Date: 20250409
  Serious: Yes (Death, Hospitalization, Other)
  Sender: AMGEN
  Company Number: ES-AMGEN-ESPSP2025008373

PATIENT

DRUGS (1)
  1. ADALIMUMAB [Suspect]
     Active Substance: ADALIMUMAB
     Indication: Generalised pustular psoriasis
     Route: 065

REACTIONS (24)
  - Death [Fatal]
  - Laboratory test abnormal [Unknown]
  - Acute respiratory distress syndrome [Unknown]
  - Cardiac failure congestive [Unknown]
  - Renal failure [Unknown]
  - Decreased appetite [Unknown]
  - Asthenia [Unknown]
  - Herpes zoster [Unknown]
  - COVID-19 pneumonia [Unknown]
  - Generalised pustular psoriasis [Unknown]
  - Therapy partial responder [Unknown]
  - Treatment failure [Unknown]
  - Drug ineffective [Unknown]
  - Arthritis [Unknown]
  - Rosacea [Unknown]
  - Pain [Unknown]
  - Skin lesion [Unknown]
  - Stress [Unknown]
  - Viral infection [Unknown]
  - Bacterial infection [Unknown]
  - Fungal infection [Unknown]
  - Adverse drug reaction [Unknown]
  - Gene mutation [Unknown]
  - Maternal exposure during pregnancy [Unknown]
